FAERS Safety Report 14571952 (Version 1)
Quarter: 2018Q1

REPORT INFORMATION
  Report Type: Spontaneous
  Country: AU (occurrence: AU)
  Receive Date: 20180226
  Receipt Date: 20180226
  Transmission Date: 20180509
  Serious: Yes (Death, Life-Threatening, Hospitalization)
  Sender: FDA-Public Use
  Company Number: AU-SA-2018SA049047

PATIENT
  Age: 40 Year
  Sex: Male

DRUGS (6)
  1. MITOMYCIN C [Concomitant]
     Active Substance: MITOMYCIN
  2. GEMCITABINE [Concomitant]
     Active Substance: GEMCITABINE\GEMCITABINE HYDROCHLORIDE
  3. BCG FOR IMMUNOTHERAPY [Suspect]
     Active Substance: BACILLUS CALMETTE-GUERIN ANTIGEN, UNSPECIFIED SUBSTRAIN
     Indication: BLADDER CANCER
     Route: 043
  4. CARBOPLATIN. [Concomitant]
     Active Substance: CARBOPLATIN
  5. BCG FOR IMMUNOTHERAPY [Suspect]
     Active Substance: BACILLUS CALMETTE-GUERIN ANTIGEN, UNSPECIFIED SUBSTRAIN
     Indication: BLADDER CANCER
     Route: 043
  6. CISPLATIN. [Suspect]
     Active Substance: CISPLATIN
     Indication: TRANSITIONAL CELL CARCINOMA
     Route: 065

REACTIONS (18)
  - Pulmonary mass [Fatal]
  - Cough [Fatal]
  - Transitional cell carcinoma recurrent [Fatal]
  - Cauda equina syndrome [Fatal]
  - Chest pain [Fatal]
  - Somnolence [Fatal]
  - Metastases to bone [Fatal]
  - Pulmonary embolism [Fatal]
  - Dyspnoea [Fatal]
  - Disease progression [Fatal]
  - Metastases to central nervous system [Fatal]
  - Lymphadenopathy [Fatal]
  - Lymphadenopathy mediastinal [Fatal]
  - Fatigue [Fatal]
  - Inappropriate antidiuretic hormone secretion [Unknown]
  - Hyponatraemia [Recovered/Resolved]
  - Polyuria [Fatal]
  - Nausea [Fatal]
